FAERS Safety Report 5989997-6 (Version None)
Quarter: 2008Q4

REPORT INFORMATION
  Report Type: 
  Country: None (occurrence: None)
  Receive Date: 20081209
  Receipt Date: 20081209
  Transmission Date: 20090506
  Serious: Yes (Other)
  Sender: FDA-Public Use
  Company Number: None

PATIENT
  Age: 84 Year
  Sex: Male
  Weight: 62.5964 kg

DRUGS (2)
  1. KEFLEX [Suspect]
     Indication: SURGERY
     Dosage: IV DRIP
     Route: 041
     Dates: start: 20081029, end: 20081030
  2. CEFELEXON 500MG [Suspect]
     Indication: INFECTION
     Dosage: 1 5 HOURS PO
     Route: 048
     Dates: start: 20081101, end: 20081108

REACTIONS (3)
  - COLITIS [None]
  - PYREXIA [None]
  - RASH [None]
